FAERS Safety Report 6538762-X (Version None)
Quarter: 2010Q1

REPORT INFORMATION
  Report Type: 
  Country: None (occurrence: None)
  Receive Date: 20100114
  Receipt Date: 20100114
  Transmission Date: 20100710
  Serious: No
  Sender: FDA-Public Use
  Company Number: None

PATIENT
  Age: 50 Year
  Sex: Female
  Weight: 45.3597 kg

DRUGS (1)
  1. CLONIDINE [Suspect]
     Indication: DRUG WITHDRAWAL SYNDROME
     Dosage: 0.2MG ONCE PO
     Route: 048
     Dates: start: 20091213, end: 20091213

REACTIONS (1)
  - AKATHISIA [None]
